FAERS Safety Report 8997479 (Version 1)
Quarter: 2013Q1

REPORT INFORMATION
  Report Type: Spontaneous
  Country: US (occurrence: US)
  Receive Date: 20130104
  Receipt Date: 20130104
  Transmission Date: 20140127
  Serious: No
  Sender: FDA-Public Use
  Company Number: US-009507513-1301USA001516

PATIENT
  Age: 46 Year
  Sex: Female

DRUGS (4)
  1. CLARITIN-D 24 HOUR [Suspect]
     Indication: HYPERSENSITIVITY
     Dosage: UNK, ONCE
     Route: 048
     Dates: start: 201212
  2. CLARITIN-D 24 HOUR [Suspect]
     Indication: NASOPHARYNGITIS
  3. CLARITIN-D 24 HOUR [Suspect]
     Indication: RHINORRHOEA
  4. CLARITIN-D 24 HOUR [Suspect]
     Indication: NASAL CONGESTION

REACTIONS (7)
  - Palpitations [Unknown]
  - Disturbance in attention [Unknown]
  - Nasal dryness [Unknown]
  - Dry mouth [Unknown]
  - Mood altered [Unknown]
  - Feeling jittery [Unknown]
  - Therapeutic response unexpected [Unknown]
